FAERS Safety Report 13737693 (Version 1)
Quarter: 2017Q3

REPORT INFORMATION
  Report Type: Spontaneous
  Country: US (occurrence: US)
  Receive Date: 20170710
  Receipt Date: 20170710
  Transmission Date: 20171127
  Serious: Yes (Other)
  Sender: FDA-Public Use
  Company Number: US-SAOL THERAPEUTICS-2016SAO00219

PATIENT
  Sex: Male

DRUGS (2)
  1. GABLOFEN [Suspect]
     Active Substance: BACLOFEN
     Route: 037
  2. BACLOFEN. [Suspect]
     Active Substance: BACLOFEN
     Dosage: 1802 ?G, \DAY
     Route: 037

REACTIONS (7)
  - Feeling jittery [Unknown]
  - Muscle spasticity [Unknown]
  - Stereotypy [Unknown]
  - Dyskinesia [Unknown]
  - Withdrawal syndrome [Unknown]
  - Erythema [Unknown]
  - Muscle spasms [Unknown]
